FAERS Safety Report 5228917-9 (Version None)
Quarter: 2007Q1

REPORT INFORMATION
  Report Type: 
  Country: None (occurrence: None)
  Receive Date: 20070205
  Receipt Date: 20070129
  Transmission Date: 20070707
  Serious: Yes (Hospitalization)
  Sender: FDA-Public Use
  Company Number: CA-SANOFI-SYNTHELABO-F01200700119

PATIENT
  Sex: Male

DRUGS (3)
  1. BEVACIZUMAB [Suspect]
     Route: 042
     Dates: start: 20070111, end: 20070111
  2. CAPECITABINE [Suspect]
     Dosage: 4000 MG
     Route: 048
     Dates: start: 20070111, end: 20070114
  3. OXALIPLATIN [Suspect]
     Indication: COLON CANCER
     Route: 042
     Dates: start: 20070111, end: 20070111

REACTIONS (1)
  - CARDIAC DISORDER [None]
